FAERS Safety Report 5471789-8 (Version None)
Quarter: 2007Q3

REPORT INFORMATION
  Report Type: 
  Country: None (occurrence: None)
  Receive Date: 20070928
  Receipt Date: 20070524
  Transmission Date: 20080115
  Serious: No
  Sender: FDA-Public Use
  Company Number: US-BRISTOL-MYERS SQUIBB COMPANY-13793088

PATIENT
  Sex: Male

DRUGS (9)
  1. DEFINITY [Suspect]
     Indication: ECHOCARDIOGRAM
  2. NORVASC [Concomitant]
  3. CLONIDINE [Concomitant]
  4. AVAPRO [Concomitant]
  5. LIPITOR [Concomitant]
  6. BENEFIBER [Concomitant]
  7. TYLENOL (CAPLET) [Concomitant]
  8. ERYTHROMYCIN [Concomitant]
  9. M.V.I. [Concomitant]

REACTIONS (2)
  - ABDOMINAL PAIN [None]
  - ARTHRALGIA [None]
